FAERS Safety Report 8149166 (Version 2)
Quarter: 2012Q4

REPORT INFORMATION
  Report Type: 
  Country: US (occurrence: US)
  Receive Date: 20110922
  Receipt Date: 20121023
  Transmission Date: 20130627
  Serious: No
  Sender: FDA-Public Use
  Company Number: US-ASTRAZENECA-2011SE40520

PATIENT
  Age: 57 Year
  Sex: Male
  Weight: 102.1 kg

DRUGS (9)
  1. SEROQUEL [Suspect]
     Indication: BIPOLAR DISORDER
     Route: 048
  2. SEROQUEL [Suspect]
     Indication: MANIA
     Route: 048
  3. SEROQUEL [Suspect]
     Indication: DRUG WITHDRAWAL MAINTENANCE THERAPY
     Route: 048
  4. SEROQUEL [Suspect]
     Indication: BIPOLAR DISORDER
     Route: 048
     Dates: start: 2007
  5. SEROQUEL [Suspect]
     Indication: MANIA
     Route: 048
     Dates: start: 2007
  6. SEROQUEL [Suspect]
     Indication: DRUG WITHDRAWAL MAINTENANCE THERAPY
     Route: 048
     Dates: start: 2007
  7. WELLBUTRIN [Concomitant]
     Indication: BIPOLAR DISORDER
  8. WELLBUTRIN XL [Concomitant]
     Indication: BIPOLAR DISORDER
  9. DEPAKOTE [Concomitant]
     Indication: BIPOLAR DISORDER

REACTIONS (10)
  - Injury [Unknown]
  - Insomnia [Unknown]
  - Chills [Unknown]
  - Hyperhidrosis [Unknown]
  - Retching [Unknown]
  - Mental impairment [Unknown]
  - Drug withdrawal syndrome [Unknown]
  - Vomiting [Unknown]
  - Tremor [Unknown]
  - Drug dose omission [Unknown]
